FAERS Safety Report 18604967 (Version 1)
Quarter: 2020Q4

REPORT INFORMATION
  Report Type: Spontaneous
  Country: US (occurrence: US)
  Receive Date: 20201211
  Receipt Date: 20201211
  Transmission Date: 20210114
  Serious: Yes (Hospitalization)
  Sender: FDA-Public Use
  Company Number: None

PATIENT
  Age: 26 Year
  Sex: Male
  Weight: 48.8 kg

DRUGS (5)
  1. ENTYVIO [Suspect]
     Active Substance: VEDOLIZUMAB
  2. PREDNISONE. [Concomitant]
     Active Substance: PREDNISONE
  3. MESALAMINE. [Concomitant]
     Active Substance: MESALAMINE
  4. BUDESONIDE. [Concomitant]
     Active Substance: BUDESONIDE
  5. ZYRTEC [Concomitant]
     Active Substance: CETIRIZINE HYDROCHLORIDE

REACTIONS (6)
  - Pain [None]
  - Abdominal pain [None]
  - Nausea [None]
  - Dyspepsia [None]
  - Drug ineffective [None]
  - Crohn^s disease [None]

NARRATIVE: CASE EVENT DATE: 20191209
